FAERS Safety Report 11225102 (Version 3)
Quarter: 2015Q3

REPORT INFORMATION
  Report Type: Spontaneous
  Country: US (occurrence: None)
  Receive Date: 20150625
  Receipt Date: 20150818
  Transmission Date: 20151125
  Serious: Yes (Hospitalization)
  Sender: FDA-Public Use
  Company Number: 1713747-2015-999186

PATIENT
  Age: 68 Year
  Sex: Female

DRUGS (11)
  1. DELFLEX [Suspect]
     Active Substance: CALCIUM CHLORIDE\DEXTROSE MONOHYDRATE\MAGNESIUM CHLORIDE\SODIUM CHLORIDE\SODIUM LACTATE
     Indication: PERITONEAL DIALYSIS
     Route: 033
  2. COREG [Concomitant]
     Active Substance: CARVEDILOL
  3. LISINOPRIL. [Concomitant]
     Active Substance: LISINOPRIL
  4. NEXIUM [Concomitant]
     Active Substance: ESOMEPRAZOLE MAGNESIUM
  5. LIPITOR [Concomitant]
     Active Substance: ATORVASTATIN CALCIUM
  6. ASPIRIN. [Concomitant]
     Active Substance: ASPIRIN
  7. LIBERTY CYCLER SET [Concomitant]
     Active Substance: DEVICE
  8. PROCARDIA XL [Concomitant]
     Active Substance: NIFEDIPINE
  9. NIFEDIPINE. [Concomitant]
     Active Substance: NIFEDIPINE
  10. LIBERTY CYCLER [Concomitant]
     Active Substance: DEVICE
  11. POTASSIUM CHLORIDE. [Concomitant]
     Active Substance: POTASSIUM CHLORIDE

REACTIONS (8)
  - Diverticulitis [None]
  - Hypertensive emergency [None]
  - Anaemia [None]
  - Acute pulmonary oedema [None]
  - Peritoneal dialysis [None]
  - Gastrointestinal haemorrhage [None]
  - Gastritis [None]
  - Oedema peripheral [None]

NARRATIVE: CASE EVENT DATE: 20150322
